FAERS Safety Report 5938558-3 (Version None)
Quarter: 2008Q4

REPORT INFORMATION
  Report Type: 
  Country: None (occurrence: None)
  Receive Date: 20081103
  Receipt Date: 20081028
  Transmission Date: 20090506
  Serious: Yes (Other)
  Sender: FDA-Public Use
  Company Number: PHBS2008JP06155

PATIENT
  Age: 42 Year
  Sex: Male

DRUGS (3)
  1. CYCLOSPORINE [Suspect]
     Indication: LIVER TRANSPLANT
  2. METHYLPREDNISOLONE 16MG TAB [Concomitant]
     Indication: LIVER TRANSPLANT
  3. CD25 ANTIBODY [Concomitant]
     Indication: HEART TRANSPLANT

REACTIONS (3)
  - PARKINSONIAN REST TREMOR [None]
  - PARKINSONISM [None]
  - PLEURAL EFFUSION [None]
